FAERS Safety Report 9528378 (Version 4)
Quarter: 2014Q1

REPORT INFORMATION
  Report Type: Spontaneous
  Country: US (occurrence: US)
  Receive Date: 20130917
  Receipt Date: 20140303
  Transmission Date: 20141002
  Serious: Yes (Hospitalization)
  Sender: FDA-Public Use
  Company Number: US-PFIZER INC-2013263006

PATIENT
  Age: 52 Year
  Sex: Male
  Weight: 80.27 kg

DRUGS (1)
  1. INLYTA [Suspect]
     Indication: RENAL CANCER
     Dosage: 5 MG, 2X/DAY
     Route: 048
     Dates: start: 20130819, end: 20130905

REACTIONS (3)
  - Pneumonia [Recovering/Resolving]
  - Disease progression [Unknown]
  - Renal cancer [Unknown]
